FAERS Safety Report 24293702 (Version 1)
Quarter: 2024Q3

REPORT INFORMATION
  Report Type: Spontaneous
  Country: US (occurrence: None)
  Receive Date: 20240906
  Receipt Date: 20240906
  Transmission Date: 20241016
  Serious: No
  Sender: DOMPE FARMACEUTICI
  Company Number: US-FARMAPROD-202308-202402-0477

PATIENT
  Sex: Male
  Weight: 104.33 kg

DRUGS (31)
  1. OXERVATE [Suspect]
     Active Substance: CENEGERMIN-BKBJ
     Indication: Neurotrophic keratopathy
     Route: 047
     Dates: start: 20240124
  2. RESTASIS [Concomitant]
     Active Substance: CYCLOSPORINE
     Dosage: DROPERETTE
  3. ZIOPTAN [Concomitant]
     Active Substance: TAFLUPROST
     Dosage: DROPERETTE
  4. ARTIFICIAL TEARS [Concomitant]
  5. PREDNISOLONE ACETATE [Concomitant]
     Active Substance: PREDNISOLONE ACETATE
  6. VITAMIN C [Concomitant]
     Active Substance: ASCORBIC ACID
  7. OMEPRAZOLE [Concomitant]
     Active Substance: OMEPRAZOLE
  8. SYNTHROID [Concomitant]
     Active Substance: LEVOTHYROXINE SODIUM
  9. CLOPIDOGREL [Concomitant]
     Active Substance: CLOPIDOGREL BISULFATE
  10. TEMAZEPAM [Concomitant]
     Active Substance: TEMAZEPAM
  11. ACETAMINOPHEN\OXYCODONE HYDROCHLORIDE [Concomitant]
     Active Substance: ACETAMINOPHEN\OXYCODONE HYDROCHLORIDE
  12. FENOFIBRATE [Concomitant]
     Active Substance: FENOFIBRATE
  13. LOSARTAN POTASSIUM [Concomitant]
     Active Substance: LOSARTAN POTASSIUM
  14. PREDNISONE [Concomitant]
     Active Substance: PREDNISONE
  15. ONDANSETRON [Concomitant]
     Active Substance: ONDANSETRON
     Dosage: DISINTEGRATING
  16. SERENOL [Concomitant]
     Dosage: 500 MCG-12
  17. VENTOLIN HFA [Concomitant]
     Active Substance: ALBUTEROL SULFATE
     Dosage: HYDROFLUOROALKANE, AEROSOL WITH ADAPTER
  18. CARVEDILOL [Concomitant]
     Active Substance: CARVEDILOL
  19. ALLOPURINOL [Concomitant]
     Active Substance: ALLOPURINOL
  20. AMBIEN [Concomitant]
     Active Substance: ZOLPIDEM TARTRATE
  21. VITAMIN D3 [Concomitant]
     Active Substance: CHOLECALCIFEROL
  22. LEVOTHYROXINE SODIUM [Concomitant]
     Active Substance: LEVOTHYROXINE SODIUM
  23. MONTELUKAST SODIUM [Concomitant]
     Active Substance: MONTELUKAST\MONTELUKAST SODIUM
  24. TRIAMTERENE-HYDROCHLOROTHIAZID [Concomitant]
  25. ATORVASTATIN CALCIUM [Concomitant]
     Active Substance: ATORVASTATIN CALCIUM
  26. DIAZEPAM [Concomitant]
     Active Substance: DIAZEPAM
  27. ESZOPICLONE [Concomitant]
     Active Substance: ESZOPICLONE
  28. FAMOTIDINE [Concomitant]
     Active Substance: FAMOTIDINE
  29. ALBUTEROL SULFATE [Concomitant]
     Active Substance: ALBUTEROL SULFATE
     Dosage: HYDROFLUOROALKANE, AEROSOL WITH ADAPTER
  30. ASPIRIN [Concomitant]
     Active Substance: ASPIRIN
  31. ZINC [Concomitant]
     Active Substance: ZINC
     Dosage: 50(220)

REACTIONS (3)
  - Eye pain [Unknown]
  - Eye swelling [Unknown]
  - Ocular hyperaemia [Recovered/Resolved]
